FAERS Safety Report 12725276 (Version 1)
Quarter: 2016Q3

REPORT INFORMATION
  Report Type: Spontaneous
  Country: US (occurrence: US)
  Receive Date: 20160907
  Receipt Date: 20160907
  Transmission Date: 20161109
  Serious: Yes (Other)
  Sender: FDA-Public Use
  Company Number: None

PATIENT
  Age: 78 Year
  Sex: Female
  Weight: 61.69 kg

DRUGS (1)
  1. CEPHALEXIN 500 MG CAPSULES AUROBINDO PHARMA [Suspect]
     Active Substance: CEPHALEXIN
     Indication: STAPHYLOCOCCAL INFECTION
     Dosage: CEPHALEXIN 500 MG CAPSULES - 40 CAPS /4X DAY FOR 10 DAYS
     Route: 048
     Dates: start: 20160827, end: 20160827

REACTIONS (3)
  - Abdominal pain upper [None]
  - Product odour abnormal [None]
  - Product quality issue [None]

NARRATIVE: CASE EVENT DATE: 20160827
